FAERS Safety Report 8758483 (Version 1)
Quarter: 2012Q4

REPORT INFORMATION
  Report Type: 
  Country: ES (occurrence: ES)
  Receive Date: 20120829
  Receipt Date: 20120829
  Transmission Date: 20130627
  Serious: Yes (Death, Other)
  Sender: FDA-Public Use
  Company Number: ES-CELGENEUS-144-20785-12082462

PATIENT

DRUGS (2)
  1. THALIDOMIDE [Suspect]
     Indication: MULTIPLE MYELOMA
     Dosage: 50 Milligram
     Route: 048
  2. BORTEZOMIB [Suspect]
     Indication: MULTIPLE MYELOMA
     Route: 065

REACTIONS (12)
  - Metastases to liver [Fatal]
  - Metastases to lung [Fatal]
  - Lung neoplasm malignant [Fatal]
  - Plasma cell myeloma [Fatal]
  - Cerebrovascular accident [Fatal]
  - Septic shock [Fatal]
  - Myocardial infarction [Fatal]
  - Cardiac disorder [Unknown]
  - Neutropenia [Unknown]
  - Gastrointestinal disorder [Unknown]
  - Asthenia [Unknown]
  - Neuropathy peripheral [Unknown]
